FAERS Safety Report 22263979 (Version 2)
Quarter: 2023Q2

REPORT INFORMATION
  Report Type: Spontaneous
  Country: GB (occurrence: GB)
  Receive Date: 20230428
  Receipt Date: 20230502
  Transmission Date: 20230722
  Serious: Yes (Other)
  Sender: FDA-Public Use
  Company Number: GB-GILEAD-2023-0615894

PATIENT
  Age: 52 Year
  Sex: Female

DRUGS (12)
  1. DALTEPARIN SODIUM [Interacting]
     Active Substance: DALTEPARIN SODIUM
     Dosage: 1800 MICROUNITS PER DAY
     Route: 065
  2. AMITRIPTYLINE [Interacting]
     Active Substance: AMITRIPTYLINE
     Dosage: UNK
     Route: 065
  3. CYCLIZINE HYDROCHLORIDE [Interacting]
     Active Substance: CYCLIZINE HYDROCHLORIDE
     Dosage: 50 MG, 3X/DAY
     Route: 065
  4. LEVOTHYROXINE [Interacting]
     Active Substance: LEVOTHYROXINE
     Dosage: 75 UG, 1X/DAY
     Route: 065
  5. LOPERAMIDE HYDROCHLORIDE [Interacting]
     Active Substance: LOPERAMIDE HYDROCHLORIDE
     Dosage: 20 MG, 3X/DAY
     Route: 065
  6. PROPRANOLOL [Interacting]
     Active Substance: PROPRANOLOL HYDROCHLORIDE
     Dosage: UNK
     Route: 065
  7. TRODELVY [Interacting]
     Active Substance: SACITUZUMAB GOVITECAN-HZIY
     Indication: Triple negative breast cancer
     Dosage: FIRST CYCLE
     Route: 042
     Dates: start: 20221207
  8. TRODELVY [Interacting]
     Active Substance: SACITUZUMAB GOVITECAN-HZIY
     Dosage: SECOND AND THIRD CYCLE, DOSE UNKNOWN
     Route: 042
  9. DEXAMETHASONE [Concomitant]
     Active Substance: DEXAMETHASONE
     Dosage: PRE-MEDICATION
  10. ONDANSETRON [Concomitant]
     Active Substance: ONDANSETRON
     Dosage: 1 DOSAGE FORM, PRE-MEDICATION
  11. ACETAMINOPHEN [Concomitant]
     Active Substance: ACETAMINOPHEN
     Dosage: 1000 MG, PRE-MEDICATION
  12. PREDNISOLONE [Concomitant]
     Active Substance: PREDNISOLONE
     Dosage: PRE-MEDICATION

REACTIONS (9)
  - Emotional disorder [Unknown]
  - Vomiting [Unknown]
  - Diarrhoea [Unknown]
  - Fatigue [Unknown]
  - Drug interaction [Unknown]
  - Neutropenia [Unknown]
  - Nausea [Unknown]
  - Expired product administered [Unknown]
  - Product colour issue [Unknown]

NARRATIVE: CASE EVENT DATE: 20221207
